FAERS Safety Report 14583851 (Version 1)
Quarter: 2018Q1

REPORT INFORMATION
  Report Type: Spontaneous
  Country: US (occurrence: US)
  Receive Date: 20180228
  Receipt Date: 20180228
  Transmission Date: 20180509
  Serious: Yes (Other)
  Sender: FDA-Public Use
  Company Number: US-PFIZER INC-2018078638

PATIENT
  Sex: Female

DRUGS (1)
  1. NEURONTIN [Suspect]
     Active Substance: GABAPENTIN
     Dosage: 100 MG, THREE TIMES A DAY (100 MG/8HR)
     Dates: start: 2006

REACTIONS (6)
  - Nocardiosis [Unknown]
  - Hyperhidrosis [Unknown]
  - Hypoaesthesia [Unknown]
  - Insomnia [Unknown]
  - Nerve injury [Unknown]
  - Pain in extremity [Unknown]

NARRATIVE: CASE EVENT DATE: 2011
